FAERS Safety Report 18412383 (Version 2)
Quarter: 2020Q4

REPORT INFORMATION
  Report Type: Spontaneous
  Country: US (occurrence: US)
  Receive Date: 20201022
  Receipt Date: 20201110
  Transmission Date: 20210114
  Serious: Yes (Other)
  Sender: FDA-Public Use
  Company Number: US-AMGEN-USASP2020168929

PATIENT
  Age: 79 Year
  Sex: Female
  Weight: 159 kg

DRUGS (1)
  1. PROLIA [Suspect]
     Active Substance: DENOSUMAB
     Indication: OSTEOPOROSIS POSTMENOPAUSAL
     Dosage: 60 MILLIGRAM, Q6MO
     Route: 058
     Dates: start: 20150325

REACTIONS (4)
  - Osteonecrosis of jaw [Unknown]
  - Tooth abscess [Unknown]
  - Impaired healing [Unknown]
  - Tooth extraction [Unknown]
